FAERS Safety Report 6727379-X (Version None)
Quarter: 2010Q2

REPORT INFORMATION
  Report Type: 
  Country: None (occurrence: None)
  Receive Date: 20100517
  Receipt Date: 20100506
  Transmission Date: 20101027
  Serious: Yes (Other)
  Sender: FDA-Public Use
  Company Number: PHHY2010US24515

PATIENT
  Sex: Male

DRUGS (13)
  1. ZOMETA [Suspect]
     Indication: BONE DISORDER
     Dosage: UNK
     Route: 042
     Dates: start: 20090801, end: 20100301
  2. METFORMIN HYDROCHLORIDE [Concomitant]
     Indication: DIABETES MELLITUS
  3. INSULIN HUMAN [Concomitant]
     Indication: DIABETES MELLITUS
     Dosage: 70/20 BID
  4. LORTAB [Concomitant]
     Indication: BONE PAIN
  5. BICALUTAMIDE [Concomitant]
  6. VIOKASE [Concomitant]
  7. ENALAPRIL [Concomitant]
  8. LOVASTATIN [Concomitant]
  9. RANITIDINE [Concomitant]
  10. CITALOPRAM [Concomitant]
  11. OXYBUTYNIN [Concomitant]
  12. CYANOCOBALAMIN [Concomitant]
  13. ASPIRIN [Concomitant]

REACTIONS (7)
  - BONE PAIN [None]
  - IMPAIRED HEALING [None]
  - ORAL PAIN [None]
  - OSTEONECROSIS OF JAW [None]
  - TOOTH DISCOLOURATION [None]
  - TOOTH EXTRACTION [None]
  - TOOTHACHE [None]
